FAERS Safety Report 9814345 (Version 1)
Quarter: 2014Q1

REPORT INFORMATION
  Report Type: Spontaneous
  Country: US (occurrence: US)
  Receive Date: 20140113
  Receipt Date: 20140113
  Transmission Date: 20141002
  Serious: Yes (Death, Hospitalization, Other)
  Sender: FDA-Public Use
  Company Number: US-PFIZER INC-2014006397

PATIENT
  Age: 64 Year
  Sex: Female

DRUGS (5)
  1. ALPRAZOLAM [Suspect]
     Dosage: UNK
     Route: 048
  2. DILTIAZEM [Suspect]
     Dosage: INGESTED 240MG #11
     Route: 048
  3. METOPROLOL [Suspect]
     Dosage: INGESTED 50MG  #18
     Route: 048
  4. CITALOPRAM [Suspect]
     Dosage: INGESTED # 20
     Route: 048
  5. SITAGLIPTIN [Suspect]
     Dosage: INGESTED # 6
     Route: 048

REACTIONS (14)
  - Overdose [Fatal]
  - Completed suicide [Fatal]
  - Unresponsive to stimuli [Recovered/Resolved]
  - Hypotension [Unknown]
  - Nodal rhythm [Unknown]
  - Atrial fibrillation [Unknown]
  - Hypertension [Unknown]
  - Anuria [Unknown]
  - Thrombocytopenia [Unknown]
  - Poor peripheral circulation [Unknown]
  - Agitation [Unknown]
  - Ventricular extrasystoles [Unknown]
  - Mydriasis [Unknown]
  - Pupil fixed [Unknown]
